FAERS Safety Report 25016187 (Version 6)
Quarter: 2025Q2

REPORT INFORMATION
  Report Type: Spontaneous
  Country: US (occurrence: US)
  Receive Date: 20250227
  Receipt Date: 20250602
  Transmission Date: 20250717
  Serious: No
  Sender: KARYOPHARM THERAPEUTICS
  Company Number: US-KARYOPHARM-2025KPT000185

PATIENT

DRUGS (12)
  1. XPOVIO [Suspect]
     Active Substance: SELINEXOR
     Indication: Plasma cell myeloma
     Route: 048
     Dates: start: 20250219, end: 2025
  2. XPOVIO [Suspect]
     Active Substance: SELINEXOR
     Route: 048
     Dates: start: 2025, end: 2025
  3. ACYCLOVIR [Concomitant]
     Active Substance: ACYCLOVIR
     Route: 048
  4. ASPIRIN [Concomitant]
     Active Substance: ASPIRIN
  5. ATORVASTATIN [Concomitant]
     Active Substance: ATORVASTATIN
  6. BACTRIM [Concomitant]
     Active Substance: SULFAMETHOXAZOLE\TRIMETHOPRIM
     Route: 048
  7. DECADRON [Concomitant]
     Active Substance: DEXAMETHASONE
     Route: 048
  8. ELIQUIS [Concomitant]
     Active Substance: APIXABAN
     Route: 048
  9. DARZALEX FASPRO [Concomitant]
     Active Substance: DARATUMUMAB\HYALURONIDASE-FIHJ
  10. PROTONIX [Concomitant]
     Active Substance: PANTOPRAZOLE SODIUM
  11. REVLIMID [Concomitant]
     Active Substance: LENALIDOMIDE
  12. LISINOPRIL [Concomitant]
     Active Substance: LISINOPRIL

REACTIONS (7)
  - Abdominal discomfort [Unknown]
  - Feeling abnormal [Unknown]
  - White blood cell disorder [Unknown]
  - Clostridium difficile infection [Not Recovered/Not Resolved]
  - Nausea [Unknown]
  - Diarrhoea [Not Recovered/Not Resolved]
  - Thrombocytopenia [Unknown]

NARRATIVE: CASE EVENT DATE: 20250101
